FAERS Safety Report 8299675 (Version 3)
Quarter: 2012Q4

REPORT INFORMATION
  Report Type: 
  Country: US (occurrence: US)
  Receive Date: 20111219
  Receipt Date: 20121203
  Transmission Date: 20130627
  Serious: Yes (Other)
  Sender: FDA-Public Use
  Company Number: US-ROCHE-1022814

PATIENT
  Age: 44 Year
  Sex: Female
  Weight: 69.46 kg

DRUGS (8)
  1. ACCUTANE [Suspect]
     Indication: ACNE CYSTIC
     Route: 065
     Dates: start: 1995
  2. ACCUTANE [Suspect]
     Route: 065
     Dates: start: 1997
  3. ACCUTANE [Suspect]
     Route: 065
     Dates: start: 1998
  4. ACCUTANE [Suspect]
     Route: 065
     Dates: start: 1999, end: 200110
  5. ZESTRIL [Concomitant]
     Route: 065
  6. FUROSEMIDE [Concomitant]
     Route: 065
  7. NITROSTAT [Concomitant]
     Route: 065
  8. POTASSIUM [Concomitant]
     Route: 065

REACTIONS (11)
  - Gastrooesophageal reflux disease [Unknown]
  - Oesophagitis [Unknown]
  - Emotional distress [Unknown]
  - Inflammatory bowel disease [Unknown]
  - Colitis ulcerative [Unknown]
  - Irritable bowel syndrome [Unknown]
  - Dry skin [Unknown]
  - Vision blurred [Unknown]
  - Chapped lips [Unknown]
  - Pruritus [Unknown]
  - Pain of skin [Unknown]
